FAERS Safety Report 12609759 (Version 2)
Quarter: 2016Q3

REPORT INFORMATION
  Report Type: Spontaneous
  Country: GB (occurrence: GB)
  Receive Date: 20160801
  Receipt Date: 20160801
  Transmission Date: 20161109
  Serious: Yes (Other)
  Sender: FDA-Public Use
  Company Number: GB-CIPLA LTD.-2016GB10069

PATIENT

DRUGS (11)
  1. DOXAZOSIN [Concomitant]
     Active Substance: DOXAZOSIN\DOXAZOSIN MESYLATE
     Dosage: 1 DF, QD
     Route: 048
     Dates: start: 20121218
  2. RAMIPRIL. [Concomitant]
     Active Substance: RAMIPRIL
     Dosage: 1 DF, QD
     Route: 048
     Dates: start: 20100211
  3. REVAXIS [Concomitant]
     Active Substance: DIPHTHERIA AND TETANUS TOXOIDS AND POLIOVIRUS VACCINE ANTIGENS
     Dosage: UNK
     Route: 065
     Dates: start: 20160428, end: 20160429
  4. CITALOPRAM [Suspect]
     Active Substance: CITALOPRAM HYDROBROMIDE
     Dosage: 10 MG, UNK
     Route: 002
  5. CITALOPRAM [Suspect]
     Active Substance: CITALOPRAM HYDROBROMIDE
     Dosage: 20 MG, UNK
     Route: 002
  6. CODEINE PHOSPHATE [Concomitant]
     Active Substance: CODEINE PHOSPHATE
     Dosage: 1 DF, QID, WHEN NEEDED
     Route: 048
     Dates: start: 20160506, end: 20160603
  7. CLARITHORMYCIN [Concomitant]
     Dosage: 1 DF, ONCE 12 HOURS
     Route: 048
     Dates: start: 20160601, end: 20160608
  8. DOCUSATE SODIUM. [Concomitant]
     Active Substance: DOCUSATE SODIUM
     Dosage: 1 DF, QID, IF NEEDED
     Route: 048
     Dates: start: 20160506, end: 20160531
  9. SENNA [Concomitant]
     Active Substance: SENNA LEAF\SENNOSIDES\SENNOSIDES A AND B
     Dosage: AS NECESSARY, ONE OR TWO TO BE TAKEN AT NIGHT FOR C...
     Route: 048
     Dates: start: 20160506, end: 20160605
  10. INDAPAMIDE. [Concomitant]
     Active Substance: INDAPAMIDE
     Dosage: 1 DF, QD, EVERY MORNING
     Route: 048
     Dates: start: 20120416
  11. AMLODIPINE [Concomitant]
     Active Substance: AMLODIPINE BESYLATE
     Dosage: 1 DF, QD
     Route: 048
     Dates: start: 20090130

REACTIONS (6)
  - Hyperhidrosis [Unknown]
  - Tremor [Unknown]
  - Feeling hot [Unknown]
  - Agitation [Unknown]
  - Mood altered [Unknown]
  - Serotonin syndrome [Recovered/Resolved]

NARRATIVE: CASE EVENT DATE: 20160707
